FAERS Safety Report 6291208-1 (Version None)
Quarter: 2009Q3

REPORT INFORMATION
  Report Type: 
  Country: None (occurrence: None)
  Receive Date: 20090730
  Receipt Date: 20090721
  Transmission Date: 20100115
  Serious: Yes (Other)
  Sender: FDA-Public Use
  Company Number: US-JNJCH-2009018929

PATIENT
  Age: 74 Year
  Sex: Female

DRUGS (5)
  1. VISINE EYE DROPS [Suspect]
     Indication: EYE DISORDER
     Dosage: TEXT:UNSPECIFIED
     Route: 047
  2. CYCLOSPORINE [Suspect]
     Indication: EYE DISORDER
     Dosage: TEXT:UNSPECIFIED
     Route: 047
  3. OPHTHALMOLOGICALS [Suspect]
     Indication: EYE DISORDER
     Dosage: TEXT:UNSPECIFIED
     Route: 047
  4. STEROID ANTIBACTERIALS [Suspect]
     Indication: EYE DISORDER
     Dosage: TEXT:UNSPECIFIED
     Route: 047
  5. REFRESH [Suspect]
     Indication: EYE DISORDER
     Dosage: TEXT:UNSPECIFIED
     Route: 047

REACTIONS (6)
  - ASTHENOPIA [None]
  - BURNING SENSATION [None]
  - DRUG INEFFECTIVE [None]
  - EYE DISORDER [None]
  - FOREIGN BODY SENSATION IN EYES [None]
  - VISION BLURRED [None]
